FAERS Safety Report 9119556 (Version 1)
Quarter: 2013Q1

REPORT INFORMATION
  Report Type: Spontaneous
  Country: US (occurrence: None)
  Receive Date: 20130221
  Receipt Date: 20130221
  Transmission Date: 20140127
  Serious: No
  Sender: FDA-Public Use
  Company Number: None

PATIENT
  Sex: 0

DRUGS (2)
  1. SODIUM CHLORIDE 0.9% [Suspect]
     Dosage: B. BRAUN MEDICAL INC.  INJECTABLE INJECTION 0.9% IV BAG 250 ML
     Route: 042
  2. HEPARIN SODIUM [Suspect]
     Dosage: B. BRAUN MEDICAL INC. INJECTABLE INJECTION 25,000 UNITS (100 UN IV BAG 250 ML
     Route: 042

REACTIONS (2)
  - Medication error [None]
  - Circumstance or information capable of leading to medication error [None]
